FAERS Safety Report 5742060-1 (Version None)
Quarter: 2008Q2

REPORT INFORMATION
  Report Type: 
  Country: None (occurrence: None)
  Receive Date: 20080519
  Receipt Date: 20080512
  Transmission Date: 20081010
  Serious: Yes (Hospitalization)
  Sender: FDA-Public Use
  Company Number: US-MERCK-0804USA03648

PATIENT
  Age: 13 Year
  Sex: Female
  Weight: 90 kg

DRUGS (9)
  1. SINGULAIR [Suspect]
     Indication: HYPERSENSITIVITY
     Route: 048
     Dates: start: 20050101
  2. SINGULAIR [Suspect]
     Indication: ASTHMA
     Route: 048
     Dates: start: 20050101
  3. VERAMYST [Concomitant]
  4. CLARINEX D [Concomitant]
     Route: 048
  5. MAXAIR [Concomitant]
  6. RHINOCORT [Concomitant]
  7. NASONEX [Concomitant]
     Route: 065
  8. SINGULAIR [Suspect]
     Route: 048
     Dates: end: 20080401
  9. SINGULAIR [Suspect]
     Route: 048
     Dates: end: 20080401

REACTIONS (7)
  - ECZEMA [None]
  - EYE PRURITUS [None]
  - LACRIMATION INCREASED [None]
  - NASAL CONGESTION [None]
  - NASAL OEDEMA [None]
  - POSTNASAL DRIP [None]
  - SUICIDE ATTEMPT [None]
